FAERS Safety Report 4493232-8 (Version None)
Quarter: 2004Q4

REPORT INFORMATION
  Report Type: 
  Country: None (occurrence: None)
  Receive Date: 20041029
  Receipt Date: 20041015
  Transmission Date: 20050328
  Serious: Yes (Hospitalization)
  Sender: FDA-Public Use
  Company Number: PAGL/04/08/USA

PATIENT
  Age: 66 Year
  Sex: Male
  Weight: 88.4514 kg

DRUGS (2)
  1. PANGLOBULIN [Suspect]
     Indication: MYASTHENIA GRAVIS
     Dosage: 1 G/KG B.W., ONCE, I.V.
     Route: 042
     Dates: start: 20040823, end: 20040823
  2. BENADRYL [Concomitant]

REACTIONS (4)
  - CHILLS [None]
  - HYPERTENSION [None]
  - INFUSION RELATED REACTION [None]
  - PYREXIA [None]
